FAERS Safety Report 4719160-8 (Version None)
Quarter: 2005Q3

REPORT INFORMATION
  Report Type: 
  Country: None (occurrence: None)
  Receive Date: 20050719
  Receipt Date: 20050704
  Transmission Date: 20060218
  Serious: Yes (Other)
  Sender: FDA-Public Use
  Company Number: 2005092257

PATIENT
  Age: 81 Year
  Sex: Female

DRUGS (10)
  1. SOLU-MEDROL [Suspect]
     Indication: NON-HODGKIN'S LYMPHOMA
     Dosage: 500 MG (1 D), INTRAVENOUS
     Route: 042
     Dates: start: 20050411
  2. PREDNISONE [Suspect]
     Indication: NON-HODGKIN'S LYMPHOMA
     Dosage: 60 MG (1 D)
     Dates: start: 20040701
  3. CYCLOPHOSPHAMIDE [Suspect]
     Indication: NON-HODGKIN'S LYMPHOMA
     Dosage: 1000 MG (1 D)
     Dates: start: 20040701
  4. VINCRISTINE [Suspect]
     Indication: NON-HODGKIN'S LYMPHOMA
     Dosage: 2 MG (1 D)
     Dates: start: 20040701
  5. IFOSFAMIDE [Suspect]
     Indication: NON-HODGKIN'S LYMPHOMA
     Dosage: 1000 MG (1 D), INTRAVENOUS
     Route: 042
     Dates: start: 20050411
  6. ETOPOSIDE [Suspect]
     Indication: NON-HODGKIN'S LYMPHOMA
     Dosage: 80 MG (1 D), INTRAVENOUS
     Route: 042
     Dates: start: 20050411
  7. METHOTREXATE [Concomitant]
  8. CARBOPLATIN [Concomitant]
  9. RITUXIMAB [Concomitant]
  10. PIRARUBICIN [Concomitant]

REACTIONS (2)
  - DIFFUSE LARGE B-CELL LYMPHOMA RECURRENT [None]
  - GASTRIC PERFORATION [None]
